FAERS Safety Report 17138084 (Version 1)
Quarter: 2019Q4

REPORT INFORMATION
  Report Type: Spontaneous
  Country: US (occurrence: US)
  Receive Date: 20191119
  Receipt Date: 20191119
  Transmission Date: 20200122
  Serious: Yes (Hospitalization)
  Sender: FDA-Public Use
  Company Number: None

PATIENT
  Age: 58 Year
  Sex: Male

DRUGS (2)
  1. APIXABAN [Suspect]
     Active Substance: APIXABAN
     Route: 048
  2. APIXABAN [Suspect]
     Active Substance: APIXABAN
     Route: 048

REACTIONS (4)
  - Hypotension [None]
  - Gastrointestinal haemorrhage [None]
  - Diverticulum [None]
  - Cardiac failure [None]

NARRATIVE: CASE EVENT DATE: 20190605
